FAERS Safety Report 8866603 (Version 1)
Quarter: 2012Q4

REPORT INFORMATION
  Report Type: 
  Country: US (occurrence: US)
  Receive Date: 20121025
  Receipt Date: 20121025
  Transmission Date: 20130627
  Serious: No
  Sender: FDA-Public Use
  Company Number: US-AMGEN-USASP2012012868

PATIENT
  Age: 64 Year
  Sex: Female
  Weight: 97.51 kg

DRUGS (10)
  1. ENBREL [Suspect]
     Indication: PRODUCT USED FOR UNKNOWN INDICATION
     Dosage: 50 mg, qwk
     Route: 058
  2. LEUCOVORIN CA [Concomitant]
     Dosage: 5 mg, UNK
  3. METHOTREXATE [Concomitant]
     Dosage: 2.5 mg, UNK
  4. LOSARTAN HCT [Concomitant]
     Dosage: UNK
  5. FOLIC ACID [Concomitant]
     Dosage: 1 mg, UNK
  6. NEXIUM                             /01479302/ [Concomitant]
     Dosage: 40 mg, UNK
  7. FISH OIL [Concomitant]
     Dosage: UNK
  8. ONE DAILY                          /01824901/ [Concomitant]
     Dosage: UNK
  9. ASPIRIN [Concomitant]
     Dosage: 81 mg, UNK
  10. GLUCOSAMINE SULFATE [Concomitant]
     Dosage: UNK

REACTIONS (5)
  - Plantar fasciitis [Unknown]
  - Arthralgia [Unknown]
  - Joint stiffness [Unknown]
  - Injection site erythema [Unknown]
  - Injection site pain [Unknown]
